FAERS Safety Report 4817712-8 (Version None)
Quarter: 2005Q4

REPORT INFORMATION
  Report Type: 
  Country: None (occurrence: None)
  Receive Date: 20051102
  Receipt Date: 20050706
  Transmission Date: 20060501
  Serious: Yes (Death, Other)
  Sender: FDA-Public Use
  Company Number: GB-BRISTOL-MYERS SQUIBB COMPANY-13027214

PATIENT
  Age: 41 Year
  Sex: Male

DRUGS (2)
  1. ABILIFY [Suspect]
     Indication: SCHIZOPHRENIA
     Route: 048
     Dates: start: 20050601, end: 20050601
  2. AMISULPRIDE [Concomitant]
     Dates: end: 20050601

REACTIONS (7)
  - BODY TEMPERATURE INCREASED [None]
  - CONVULSION [None]
  - DIABETIC KETOACIDOSIS [None]
  - GLASGOW COMA SCALE ABNORMAL [None]
  - HYPOTENSION [None]
  - RENAL FAILURE [None]
  - TACHYCARDIA [None]
